FAERS Safety Report 24054092 (Version 2)
Quarter: 2024Q3

REPORT INFORMATION
  Report Type: Spontaneous
  Country: US (occurrence: US)
  Receive Date: 20240705
  Receipt Date: 20240729
  Transmission Date: 20241016
  Serious: Yes (Other)
  Sender: ROCHE
  Company Number: US-ROCHE-10000016589

PATIENT
  Sex: Female
  Weight: 82.8 kg

DRUGS (4)
  1. OCREVUS [Suspect]
     Active Substance: OCRELIZUMAB
     Indication: Relapsing multiple sclerosis
     Route: 065
     Dates: start: 201905, end: 202311
  2. ACYCLOVIR [Concomitant]
     Active Substance: ACYCLOVIR
  3. ABILIFY [Concomitant]
     Active Substance: ARIPIPRAZOLE
  4. AMPYRA [Concomitant]
     Active Substance: DALFAMPRIDINE

REACTIONS (1)
  - Anogenital warts [Not Recovered/Not Resolved]
